FAERS Safety Report 21251883 (Version 1)
Quarter: 2022Q3

REPORT INFORMATION
  Report Type: Spontaneous
  Country: DE (occurrence: DE)
  Receive Date: 20220825
  Receipt Date: 20220825
  Transmission Date: 20221027
  Serious: Yes (Other)
  Sender: FDA-Public Use
  Company Number: None

PATIENT
  Age: 26 Year
  Sex: Male
  Weight: 70 kg

DRUGS (7)
  1. CISPLATIN [Suspect]
     Active Substance: CISPLATIN
     Indication: Testis cancer
     Dosage: DURATION : 77 DAYS , ADDITIONAL INFORMATION : PEB SCHEME
     Dates: start: 20211015, end: 20211231
  2. ETOPOSIDE [Suspect]
     Active Substance: ETOPOSIDE
     Indication: Testis cancer
     Dosage: DURATION : 77 DAYS , ADDITIONAL INFORMATION : PEB-SCHEMA
     Dates: start: 20211015, end: 20211231
  3. BLEOMYCIN [Suspect]
     Active Substance: BLEOMYCIN SULFATE
     Indication: Testis cancer
     Dosage: DURATION : 77 DAYS , ADDITIONAL INFORMATION : PEB-SCHEMA
     Dates: start: 20211015, end: 20211231
  4. ITRACONAZOL ARISTO [Concomitant]
     Indication: Product used for unknown indication
     Dosage: FORM STRENGTH : 100 MG
  5. NOVAMINSULFON 500-1A Pharma [Concomitant]
     Indication: Product used for unknown indication
  6. ELIQUIS [Concomitant]
     Active Substance: APIXABAN
     Indication: Product used for unknown indication
     Dosage: FORM STRENGTH : 2.5 MG
  7. CHOLECALCIFEROL [Concomitant]
     Active Substance: CHOLECALCIFEROL
     Indication: Product used for unknown indication
     Dosage: 20,000 IU

REACTIONS (1)
  - Polyneuropathy [Not Recovered/Not Resolved]

NARRATIVE: CASE EVENT DATE: 20220101
